FAERS Safety Report 19213175 (Version 1)
Quarter: 2021Q2

REPORT INFORMATION
  Report Type: Spontaneous
  Country: US (occurrence: US)
  Receive Date: 20210504
  Receipt Date: 20210504
  Transmission Date: 20210717
  Serious: Yes (Other)
  Sender: FDA-Public Use
  Company Number: US-PFIZER INC-2021455179

PATIENT
  Age: 58 Year
  Sex: Female
  Weight: 179.9 kg

DRUGS (1)
  1. XELJANZ XR [Suspect]
     Active Substance: TOFACITINIB CITRATE
     Dosage: 11 MG, 1X/DAY
     Route: 048
     Dates: end: 202103

REACTIONS (2)
  - COVID-19 [Unknown]
  - Breast cancer female [Unknown]

NARRATIVE: CASE EVENT DATE: 202103
